FAERS Safety Report 6252103-7 (Version None)
Quarter: 2009Q2

REPORT INFORMATION
  Report Type: 
  Country: None (occurrence: None)
  Receive Date: 20090630
  Receipt Date: 20041201
  Transmission Date: 20091009
  Serious: Yes (Hospitalization)
  Sender: FDA-Public Use
  Company Number: US-ROCHE-639040

PATIENT
  Sex: Male

DRUGS (10)
  1. ENFUVIRTIDE [Suspect]
     Route: 065
     Dates: start: 20030726, end: 20040602
  2. ENFUVIRTIDE [Suspect]
     Route: 065
     Dates: start: 20040713, end: 20060927
  3. ZERIT [Concomitant]
     Dates: start: 20020726, end: 20040702
  4. ZERIT [Concomitant]
     Dates: start: 20040713, end: 20060927
  5. APTIVUS [Concomitant]
     Dates: start: 20030726, end: 20040702
  6. APTIVUS [Concomitant]
     Dates: start: 20040713, end: 20060927
  7. NORVIR [Concomitant]
     Dates: start: 20030726, end: 20040702
  8. NORVIR [Concomitant]
     Dates: start: 20040713, end: 20060927
  9. VIREAD [Concomitant]
     Dates: start: 20030726, end: 20040702
  10. VIREAD [Concomitant]
     Dosage: FREQUENCY REPORTED AS QD
     Dates: start: 20040713, end: 20060101

REACTIONS (3)
  - BONE DISORDER [None]
  - OSTEOARTHRITIS [None]
  - OSTEONECROSIS [None]
